FAERS Safety Report 5447728-2 (Version None)
Quarter: 2007Q3

REPORT INFORMATION
  Report Type: 
  Country: None (occurrence: None)
  Receive Date: 20070910
  Receipt Date: 20070829
  Transmission Date: 20080115
  Serious: Yes (Life-Threatening, Hospitalization)
  Sender: FDA-Public Use
  Company Number: CH-PURDUE-DEU_2007_0003602

PATIENT
  Age: 89 Year
  Sex: Female
  Weight: 58 kg

DRUGS (6)
  1. PALLADONE [Suspect]
     Indication: BACK PAIN
     Dosage: 8 MG, DAILY
     Route: 048
     Dates: start: 20070613, end: 20070625
  2. TORSEMIDE [Concomitant]
     Dosage: 10 MG, BID
     Route: 048
  3. CORVATON ^HOECHST^ [Concomitant]
  4. ASPIRIN [Concomitant]
  5. CITALOPRAM HYDROBROMIDE [Concomitant]
  6. CALCIMAGON-D3 [Concomitant]

REACTIONS (6)
  - ANOREXIA [None]
  - APATHY [None]
  - CONSTIPATION [None]
  - GAIT DISTURBANCE [None]
  - HYPERCALCAEMIA [None]
  - HYPOKALAEMIA [None]
